FAERS Safety Report 12900037 (Version 1)
Quarter: 2016Q4

REPORT INFORMATION
  Report Type: Spontaneous
  Country: US (occurrence: US)
  Receive Date: 20161101
  Receipt Date: 20161101
  Transmission Date: 20170207
  Serious: Yes (Other)
  Sender: FDA-Public Use
  Company Number: US-PFIZER INC-2016503525

PATIENT
  Sex: Female

DRUGS (4)
  1. METHOTREXATE. [Concomitant]
     Active Substance: METHOTREXATE
     Indication: RHEUMATOID ARTHRITIS
     Dosage: 12.5 MG, WEEKLY
     Route: 048
     Dates: start: 200811, end: 201606
  2. PLAQUENIL [Concomitant]
     Active Substance: HYDROXYCHLOROQUINE SULFATE
     Indication: RHEUMATOID ARTHRITIS
     Dosage: 100MG PILL ONCE A DAY
     Route: 048
     Dates: start: 200811, end: 201606
  3. LYRICA [Suspect]
     Active Substance: PREGABALIN
     Indication: PAIN
     Dosage: 150MG, 2 CAPSULES IN THE MORNING AND 2 IN THE AFTERNOON
     Route: 048
     Dates: start: 2008
  4. ZOLOFT [Concomitant]
     Active Substance: SERTRALINE HYDROCHLORIDE
     Indication: OBSESSIVE-COMPULSIVE DISORDER
     Dosage: 100MG PILL ONCE A DAY
     Route: 048
     Dates: start: 2004

REACTIONS (10)
  - Head injury [Unknown]
  - Splenomegaly [Unknown]
  - Facial bones fracture [Unknown]
  - Victim of abuse [Unknown]
  - Reading disorder [Recovering/Resolving]
  - Haemorrhage intracranial [Unknown]
  - Splenic injury [Unknown]
  - Memory impairment [Recovering/Resolving]
  - Abdominal injury [Unknown]
  - Pain [Unknown]

NARRATIVE: CASE EVENT DATE: 201504
